FAERS Safety Report 7469447-3 (Version None)
Quarter: 2011Q2

REPORT INFORMATION
  Report Type: 
  Country: None (occurrence: None)
  Receive Date: 20110510
  Receipt Date: 20110506
  Transmission Date: 20111010
  Serious: Yes (Disabling, Other)
  Sender: FDA-Public Use
  Company Number: GB-ABBOTT-11P-167-0723942-00

PATIENT
  Age: 66 Year
  Sex: Female
  Weight: 46.2 kg

DRUGS (1)
  1. HUMIRA [Suspect]
     Indication: RHEUMATOID ARTHRITIS
     Route: 058
     Dates: start: 20090201, end: 20110201

REACTIONS (3)
  - SYSTEMIC LUPUS ERYTHEMATOSUS [None]
  - FATIGUE [None]
  - WEIGHT DECREASED [None]
